FAERS Safety Report 4999929-5 (Version None)
Quarter: 2006Q2

REPORT INFORMATION
  Report Type: 
  Country: None (occurrence: None)
  Receive Date: 20060509
  Receipt Date: 20060427
  Transmission Date: 20061013
  Serious: Yes (Other)
  Sender: FDA-Public Use
  Company Number: SERX20060006

PATIENT
  Age: 23 Year
  Sex: Male

DRUGS (4)
  1. SEREPAX (OXAZEPAM)     WYETH [Suspect]
  2. EFFEXOR [Suspect]
     Dosage: 75 MG DAILY PO
     Route: 048
  3. LOVAN (FLUOXETINE HCL) [Suspect]
  4. ALCOHOL [Suspect]

REACTIONS (6)
  - AGGRESSION [None]
  - AGITATION [None]
  - INSOMNIA [None]
  - MIDDLE INSOMNIA [None]
  - SUICIDE ATTEMPT [None]
  - WEIGHT DECREASED [None]
